FAERS Safety Report 17012762 (Version 1)
Quarter: 2019Q4

REPORT INFORMATION
  Report Type: Spontaneous
  Country: US (occurrence: US)
  Receive Date: 20191001
  Receipt Date: 20191001
  Transmission Date: 20200122
  Serious: No
  Sender: FDA-Public Use
  Company Number: None

PATIENT
  Age: 80 Year
  Sex: Male

DRUGS (29)
  1. XANAX [Concomitant]
     Active Substance: ALPRAZOLAM
  2. LEXAPRO [Concomitant]
     Active Substance: ESCITALOPRAM OXALATE
  3. ATATRAX [Concomitant]
  4. LAMICTAL [Concomitant]
     Active Substance: LAMOTRIGINE
  5. BENICAR [Concomitant]
     Active Substance: OLMESARTAN MEDOXOMIL
  6. METFORMIN HCL [Concomitant]
     Active Substance: METFORMIN HYDROCHLORIDE
  7. PEPCID [Concomitant]
     Active Substance: FAMOTIDINE
  8. PROZAC [Concomitant]
     Active Substance: FLUOXETINE HYDROCHLORIDE
  9. VITAMIN C [Concomitant]
     Active Substance: ASCORBIC ACID
  10. MAGNESIUM CITRATE. [Concomitant]
     Active Substance: MAGNESIUM CITRATE
  11. HERBAL EXPEC [Concomitant]
  12. CALCIUM [Concomitant]
     Active Substance: CALCIUM
  13. CITRACAL + D [Concomitant]
     Active Substance: CALCIUM CITRATE\VITAMIN D
  14. VITAMIN D3 [Concomitant]
     Active Substance: CHOLECALCIFEROL
  15. NEURONTIN [Concomitant]
     Active Substance: GABAPENTIN
  16. ERLEADA [Suspect]
     Active Substance: APALUTAMIDE
     Indication: PROSTATE CANCER
  17. ASPIRIN. [Concomitant]
     Active Substance: ASPIRIN
  18. AVODART [Concomitant]
     Active Substance: DUTASTERIDE
  19. ZOFRAN ODT [Concomitant]
     Active Substance: ONDANSETRON HYDROCHLORIDE
  20. OCUVITE [Concomitant]
     Active Substance: VITAMINS
  21. OMEGA 3 [Concomitant]
     Active Substance: OMEGA-3 FATTY ACIDS
  22. VITAMIN B COMPLEX [Concomitant]
     Active Substance: CYANOCOBALAMIN\DEXPANTHENOL\NIACINAMIDE\PYRIDOXINE HYDROCHLORIDE\RIBOFLAVIN 5^-PHOSPHATE SODIUM\THIAMINE HYDROCHLORIDE\VITAMIN B COMPLEX
  23. ZINC GLUCONATE [Concomitant]
     Active Substance: ZINC GLUCONATE
  24. ERLEADA [Suspect]
     Active Substance: APALUTAMIDE
     Indication: PROSTATE CANCER
     Route: 048
     Dates: start: 20190126
  25. LIPITOR [Concomitant]
     Active Substance: ATORVASTATIN CALCIUM
  26. VITAMIN B12 [Concomitant]
     Active Substance: CYANOCOBALAMIN
  27. FLONASE [Concomitant]
     Active Substance: FLUTICASONE PROPIONATE
  28. ORALONE DENTAL PASTE [Concomitant]
  29. VITAMIN K2 [Concomitant]
     Active Substance: MENAQUINONE 6

REACTIONS (1)
  - Dysphagia [None]
